FAERS Safety Report 6253195-1 (Version None)
Quarter: 2009Q3

REPORT INFORMATION
  Report Type: 
  Country: None (occurrence: None)
  Receive Date: 20090701
  Receipt Date: 20090622
  Transmission Date: 20100115
  Serious: Yes (Hospitalization)
  Sender: FDA-Public Use
  Company Number: FR-MERCK-0906FRA00097

PATIENT
  Age: 74 Year
  Sex: Female

DRUGS (5)
  1. FOSAMAX [Suspect]
     Indication: OSTEOPOROSIS
     Route: 048
     Dates: end: 20090522
  2. TIAPROFENIC ACID [Suspect]
     Indication: COUGH
     Route: 048
     Dates: start: 20090521, end: 20090523
  3. LENALIDOMIDE [Concomitant]
     Indication: MULTIPLE MYELOMA
     Route: 048
  4. ESOMEPRAZOLE MAGNESIUM [Concomitant]
     Indication: GASTRIC ULCER
     Route: 048
  5. DEXAMETHASONE [Concomitant]
     Route: 048

REACTIONS (4)
  - ANAEMIA [None]
  - GASTRIC ULCER [None]
  - HAEMATEMESIS [None]
  - MELAENA [None]
